FAERS Safety Report 8155224 (Version 5)
Quarter: 2013Q4

REPORT INFORMATION
  Report Type: Spontaneous
  Country: JP (occurrence: None)
  Receive Date: 20110914
  Receipt Date: 20131127
  Transmission Date: 20140711
  Serious: Yes (Death, Hospitalization, Other)
  Sender: FDA-Public Use
  Company Number: 2009JP007145

PATIENT
  Age: 48 Year
  Sex: Male
  Weight: 62.8 kg

DRUGS (40)
  1. PROGRAF [Suspect]
     Indication: LUPUS NEPHRITIS
     Route: 048
     Dates: start: 20080215, end: 20120131
  2. PREDONINE [Suspect]
     Indication: LUPUS NEPHRITIS
     Route: 048
     Dates: end: 20091013
  3. MINOCYCLINE HYDROCHLORIDE [Suspect]
     Indication: C-REACTIVE PROTEIN INCREASED
     Route: 048
     Dates: start: 20090611, end: 20090615
  4. CLINDAMYCIN HYDROCHLORIDE [Suspect]
     Indication: C-REACTIVE PROTEIN INCREASED
     Route: 048
     Dates: start: 20090615, end: 20090622
  5. PHENYTOIN [Suspect]
     Indication: NEUROPSYCHIATRIC LUPUS
     Route: 048
     Dates: end: 20090622
  6. DALACIN [Suspect]
     Indication: C-REACTIVE PROTEIN INCREASED
     Dates: start: 20090611, end: 20090615
  7. LASIX [Concomitant]
  8. TORSEMIDE [Concomitant]
  9. INDAPAMIDE [Concomitant]
  10. ESPO (EPOETIN ALFA) [Concomitant]
  11. FERROMIA (FERROUS SODIUM CITRATE) [Concomitant]
  12. FOLIC ACID [Concomitant]
  13. BAKTAR (SULFAMETHOXAZOLE, TRIMETHOPRIM) TABLET [Concomitant]
  14. WARFARIN SODIUM [Concomitant]
  15. ALLOPURINOL [Concomitant]
  16. FOSAMAX [Concomitant]
  17. LEVOTHYROXINE SODIUM [Concomitant]
  18. ALINAMIN-F (FURSULTIAMINE HYDROCHLORIDE) [Concomitant]
  19. PRAVASTATIN [Concomitant]
  20. ZONISAMIDE [Concomitant]
  21. PHENOBARBITAL [Concomitant]
  22. AVELOX [Concomitant]
  23. ISONIAZID [Concomitant]
  24. PYDOXAL (PYRIDOXAL PHOSPHATE) [Concomitant]
  25. KETOPROFEN [Concomitant]
  26. MINOCYCLINE (MINOCYCLINE HYDROCHLORIDE) [Concomitant]
  27. SUMILU (FELBINAC) [Concomitant]
  28. ALDACTONE [Concomitant]
  29. MEIACT (CEFDITOREN PIVOXIL) [Concomitant]
  30. GASTER [Concomitant]
  31. CEFAZOLIN [Concomitant]
  32. FLURBIPROFEN [Concomitant]
  33. NESP (DARBEPOETIN ALFA) [Concomitant]
  34. POPIYODON (POVIDONE-IODINE) [Concomitant]
  35. MIRCERA (PEGZEREPOETIN ALFA) [Concomitant]
  36. CEFTRIAXONE SODIUM (CEFTRIAXONE SODIUM) [Concomitant]
  37. KAYWAN (PHYTOMENADIONE) [Concomitant]
  38. NEXIUM [Concomitant]
  39. EPOGIN (EPOETIN BETA) [Concomitant]
  40. FEBURIC (FEBUXOSTAT) [Concomitant]

REACTIONS (25)
  - Pneumonia [None]
  - Hypokalaemia [None]
  - C-reactive protein increased [None]
  - Pruritus [None]
  - Clavicle fracture [None]
  - Rectal prolapse [None]
  - Prothrombin time prolonged [None]
  - Altered state of consciousness [None]
  - International normalised ratio increased [None]
  - Renal impairment [None]
  - Condition aggravated [None]
  - Pruritus [None]
  - Contusion [None]
  - Pyrexia [None]
  - Viral infection [None]
  - Anaemia [None]
  - Constipation [None]
  - Dry skin [None]
  - Pubis fracture [None]
  - Genital ulceration [None]
  - Oedema [None]
  - Fall [None]
  - Muscular weakness [None]
  - Activities of daily living impaired [None]
  - Disuse syndrome [None]
